FAERS Safety Report 7824050-8 (Version None)
Quarter: 2011Q4

REPORT INFORMATION
  Report Type: 
  Country: None (occurrence: None)
  Receive Date: 20111019
  Receipt Date: 20111013
  Transmission Date: 20120403
  Serious: Yes (Other)
  Sender: FDA-Public Use
  Company Number: PHHY2011GR90924

PATIENT
  Age: 7 Year
  Sex: Female

DRUGS (2)
  1. EXJADE [Suspect]
     Indication: THALASSAEMIA BETA
  2. MULTI-VITAMINS [Concomitant]

REACTIONS (1)
  - NEPHROCALCINOSIS [None]
